FAERS Safety Report 21176535 (Version 2)
Quarter: 2022Q3

REPORT INFORMATION
  Report Type: Spontaneous
  Country: US (occurrence: US)
  Receive Date: 20220805
  Receipt Date: 20220913
  Transmission Date: 20221026
  Serious: Yes (Other)
  Sender: FDA-Public Use
  Company Number: US-BRISTOL-MYERS SQUIBB COMPANY-2022-083950

PATIENT
  Age: 57 Year
  Sex: Male

DRUGS (1)
  1. REVLIMID [Suspect]
     Active Substance: LENALIDOMIDE
     Indication: Plasma cell myeloma
     Dosage: TAKE 1 CAPSULE BY MOUTH DAILY AT NIGHT FOR 21 DAYS ON, THEN 7 DAYS OFF EVERY 28 DAYS
     Route: 048
     Dates: start: 20220706

REACTIONS (2)
  - Memory impairment [Unknown]
  - Diabetes mellitus [Unknown]
